FAERS Safety Report 9819482 (Version 2)
Quarter: 2014Q1

REPORT INFORMATION
  Report Type: Spontaneous
  Country: US (occurrence: US)
  Receive Date: 20140115
  Receipt Date: 20140312
  Transmission Date: 20141002
  Serious: Yes (Death, Hospitalization)
  Sender: FDA-Public Use
  Company Number: US-INCYTE CORPORATION-2014IN000047

PATIENT
  Age: 75 Year
  Sex: Female

DRUGS (5)
  1. JAKAFI [Suspect]
     Dosage: 20 MG, BID
     Route: 048
     Dates: start: 2013
  2. ALLOPURINOL [Concomitant]
  3. AMIODARONE [Concomitant]
  4. LASIX                              /00032601/ [Concomitant]
  5. OXYCODONE [Concomitant]

REACTIONS (3)
  - Death [Fatal]
  - Urinary tract infection [Unknown]
  - Drug dose omission [Unknown]
